FAERS Safety Report 15290137 (Version 1)
Quarter: 2018Q3

REPORT INFORMATION
  Report Type: Spontaneous
  Country: FR (occurrence: FR)
  Receive Date: 20180817
  Receipt Date: 20180817
  Transmission Date: 20181010
  Serious: Yes (Hospitalization)
  Sender: FDA-Public Use
  Company Number: FR-JNJFOC-20180808359

PATIENT
  Age: 52 Year
  Sex: Female
  Weight: 120 kg

DRUGS (7)
  1. FLUANXOL [Suspect]
     Active Substance: FLUPENTIXOL
     Indication: SCHIZOPHRENIA
     Route: 048
     Dates: start: 2017
  2. THERALENE [Concomitant]
     Active Substance: TRIMEPRAZINE
     Route: 065
  3. RISPERDAL [Suspect]
     Active Substance: RISPERIDONE
     Indication: SCHIZOPHRENIA
     Route: 065
  4. LEPTICUR [Concomitant]
     Active Substance: TROPATEPINE HYDROCHLORIDE
     Route: 065
  5. IMOVANE [Concomitant]
     Active Substance: ZOPICLONE
     Route: 065
  6. ALPRAZOLAM. [Concomitant]
     Active Substance: ALPRAZOLAM
     Route: 065
  7. HALDOL [Suspect]
     Active Substance: HALOPERIDOL
     Indication: SCHIZOPHRENIA
     Route: 065

REACTIONS (7)
  - Somnolence [Recovered/Resolved]
  - Parkinsonism [Recovered/Resolved]
  - Rhabdomyolysis [Recovered/Resolved]
  - Myalgia [Recovered/Resolved]
  - Dysarthria [Recovered/Resolved]
  - Psychomotor skills impaired [Recovered/Resolved]
  - Facial asymmetry [Recovered/Resolved]

NARRATIVE: CASE EVENT DATE: 20180712
